FAERS Safety Report 15377782 (Version 2)
Quarter: 2019Q2

REPORT INFORMATION
  Report Type: Spontaneous
  Country: US (occurrence: US)
  Receive Date: 20180913
  Receipt Date: 20190527
  Transmission Date: 20190711
  Serious: No
  Sender: FDA-Public Use
  Company Number: US-SA-2018SA255263

PATIENT
  Age: 69 Year
  Sex: Male

DRUGS (14)
  1. DUPIXENT [Suspect]
     Active Substance: DUPILUMAB
     Indication: DERMATITIS ATOPIC
     Dosage: 150 MG/ML, QOW
     Route: 058
     Dates: start: 20171212
  2. NIFEDIPINE. [Concomitant]
     Active Substance: NIFEDIPINE
  3. MELOXICAM. [Concomitant]
     Active Substance: MELOXICAM
  4. TRIAMTERENE/HYDROCHLOROTHIAZIDE [Concomitant]
     Active Substance: HYDROCHLOROTHIAZIDE\TRIAMTERENE
  5. ATORVASTATIN [Concomitant]
     Active Substance: ATORVASTATIN
  6. ZOLPIDEM [Concomitant]
     Active Substance: ZOLPIDEM\ZOLPIDEM TARTRATE
  7. POTASSIUM CHLORIDE. [Concomitant]
     Active Substance: POTASSIUM CHLORIDE
  8. DULERA [Concomitant]
     Active Substance: FORMOTEROL FUMARATE DIHYDRATE\MOMETASONE FUROATE
  9. LYRICA [Concomitant]
     Active Substance: PREGABALIN
  10. TAMSULOSIN [Concomitant]
     Active Substance: TAMSULOSIN
  11. FINASTERIDE. [Concomitant]
     Active Substance: FINASTERIDE
  12. ROPINIROLE. [Concomitant]
     Active Substance: ROPINIROLE
  13. SPIRIVA [Concomitant]
     Active Substance: TIOTROPIUM BROMIDE MONOHYDRATE
  14. TRAZODONE [Concomitant]
     Active Substance: TRAZODONE HYDROCHLORIDE

REACTIONS (1)
  - Dermatitis atopic [Not Recovered/Not Resolved]
